FAERS Safety Report 6445096-0 (Version None)
Quarter: 2009Q4

REPORT INFORMATION
  Report Type: 
  Country: None (occurrence: None)
  Receive Date: 20091118
  Receipt Date: 20091112
  Transmission Date: 20100525
  Serious: Yes (Other)
  Sender: FDA-Public Use
  Company Number: BE-ABBOTT-09P-013-0599404-00

PATIENT
  Sex: Female

DRUGS (9)
  1. HUMIRA [Suspect]
     Indication: RHEUMATOID ARTHRITIS
     Route: 058
     Dates: start: 20080728, end: 20081025
  2. HUMIRA [Suspect]
     Indication: PSORIATIC ARTHROPATHY
  3. FELDENE [Concomitant]
     Indication: ARTHRITIS
     Dosage: APPROXIMATELY 3X/WEEK
  4. TRIAMCINOLONE [Concomitant]
     Indication: RHEUMATOID ARTHRITIS
     Dosage: DAILY
  5. TRIAMCINOLONE [Concomitant]
     Indication: PSORIATIC ARTHROPATHY
  6. SULAR [Concomitant]
     Indication: DRUG USE FOR UNKNOWN INDICATION
  7. SANDOZ CA-D [Concomitant]
     Indication: DRUG USE FOR UNKNOWN INDICATION
  8. DAFALGAN FORTE [Concomitant]
     Indication: DRUG USE FOR UNKNOWN INDICATION
     Dosage: FORM STRENGTH 1000 MG 1 OR 2 /DAY
  9. PIROXICAM [Concomitant]
     Indication: DRUG USE FOR UNKNOWN INDICATION
     Dosage: FORM STRENGTH 20 MG VERY OCCASIONALLY 1/DAY

REACTIONS (3)
  - AUTOIMMUNE HEPATITIS [None]
  - POLYARTHRITIS [None]
  - PSORIASIS [None]
